FAERS Safety Report 6610491-3 (Version None)
Quarter: 2010Q1

REPORT INFORMATION
  Report Type: 
  Country: None (occurrence: None)
  Receive Date: 20100302
  Receipt Date: 20100222
  Transmission Date: 20100710
  Serious: Yes (Other)
  Sender: FDA-Public Use
  Company Number: PHEH2010US02673

PATIENT
  Sex: Male

DRUGS (1)
  1. FANAPT [Suspect]
     Dosage: 6 MG, BID
     Route: 048

REACTIONS (3)
  - DIZZINESS [None]
  - PARAESTHESIA [None]
  - UNRESPONSIVE TO STIMULI [None]
